FAERS Safety Report 9501442 (Version 1)
Quarter: 2013Q3

REPORT INFORMATION
  Report Type: Spontaneous
  Country: US (occurrence: US)
  Receive Date: 20130905
  Receipt Date: 20130905
  Transmission Date: 20140515
  Serious: Yes (Other)
  Sender: FDA-Public Use
  Company Number: US-GLAXOSMITHKLINE-A1040292A

PATIENT
  Age: 13 Year
  Sex: Female

DRUGS (1)
  1. LAMICTAL XR [Suspect]
     Indication: BIPOLAR DISORDER
     Dosage: 300MG UNKNOWN
     Route: 048
     Dates: end: 20130824

REACTIONS (7)
  - Bipolar disorder [Unknown]
  - Aphagia [Unknown]
  - Streptococcal infection [Unknown]
  - Tonsillectomy [Unknown]
  - Procedural complication [Unknown]
  - Dysphagia [Unknown]
  - Drug administration error [Unknown]
